FAERS Safety Report 21990137 (Version 1)
Quarter: 2023Q1

REPORT INFORMATION
  Report Type: Spontaneous
  Country: US (occurrence: None)
  Receive Date: 20230213
  Receipt Date: 20230213
  Transmission Date: 20230418
  Serious: Yes (Hospitalization)
  Sender: FDA-Public Use
  Company Number: None

PATIENT
  Age: 57 Year
  Sex: Female

DRUGS (2)
  1. NADIDE [Suspect]
     Active Substance: NADIDE
     Dosage: OTHER FREQUENCY : ONCE;?
     Route: 041
     Dates: start: 20230202, end: 20230202
  2. NAD [Concomitant]
     Dates: start: 20230202, end: 20230202

REACTIONS (4)
  - Lethargy [None]
  - Disorientation [None]
  - Nausea [None]
  - Infusion related reaction [None]

NARRATIVE: CASE EVENT DATE: 20230202
